FAERS Safety Report 11518107 (Version 1)
Quarter: 2015Q3

REPORT INFORMATION
  Report Type: Spontaneous
  Country: US (occurrence: US)
  Receive Date: 20150917
  Receipt Date: 20150917
  Transmission Date: 20151125
  Serious: No
  Sender: FDA-Public Use
  Company Number: US-GALDERMA-US15004654

PATIENT
  Age: 75 Year
  Sex: Female

DRUGS (21)
  1. VITAMIN C [Concomitant]
     Active Substance: ASCORBIC ACID
     Dosage: 1000 MG
     Route: 048
  2. CLINIQUE SPF 30 ADVANCED PROTECTION BODY CREAM WITH SOLAR SMART [Concomitant]
     Active Substance: AVOBENZONE\HOMOSALATE\OCTISALATE\OCTOCRYLENE\OXYBENZONE
  3. ASPIRIN. [Concomitant]
     Active Substance: ASPIRIN
     Dosage: 81 MG
     Route: 048
  4. MIRVASO [Suspect]
     Active Substance: BRIMONIDINE TARTRATE
     Indication: ROSACEA
     Dosage: 0.33%
     Route: 061
     Dates: start: 20150607, end: 20150610
  5. CITRUCEL [Concomitant]
     Active Substance: METHYLCELLULOSE (4000 MPA.S)
     Route: 048
  6. CALTRATE [Concomitant]
     Active Substance: CALCIUM CARBONATE
     Dosage: 1200 MG
     Route: 048
  7. MULTIVITAMIN [Concomitant]
     Active Substance: VITAMINS
     Route: 048
  8. COQ10 [Concomitant]
     Active Substance: UBIDECARENONE
     Dosage: 100 MG
     Route: 048
  9. PRILOSEC [Concomitant]
     Active Substance: OMEPRAZOLE MAGNESIUM
     Dosage: 20 MG
     Route: 048
  10. ROLAIDS [Concomitant]
     Active Substance: CALCIUM CARBONATE\MAGNESIUM HYDROXIDE
     Route: 048
  11. CRANBERRY. [Concomitant]
     Active Substance: CRANBERRY
     Dosage: 300 MG
     Route: 048
  12. COENZYME B COMPLEX [Concomitant]
     Route: 048
  13. VITAMIN E [Concomitant]
     Active Substance: .ALPHA.-TOCOPHEROL
     Dosage: 400 IU
     Route: 048
  14. COLACE [Concomitant]
     Active Substance: DOCUSATE SODIUM
     Route: 048
  15. MIRALAX [Concomitant]
     Active Substance: POLYETHYLENE GLYCOL 3350
  16. MAGNESIUM [Concomitant]
     Active Substance: MAGNESIUM
     Indication: SUPPLEMENTATION THERAPY
     Route: 048
  17. SELENIUM [Concomitant]
     Active Substance: SELENIUM
     Dosage: 200 MCG
     Route: 048
  18. TYLENOL [Concomitant]
     Active Substance: ACETAMINOPHEN
     Indication: ARTHRALGIA
  19. GLUCOSAMINE WITH CHONDROITIN WITH MSN [Concomitant]
     Dosage: 1100/1200/300 MG
     Route: 048
  20. RESVERATROL [Concomitant]
     Active Substance: RESVERATROL
     Dosage: 250 MG
     Route: 048
  21. NEXIUM 24HR [Concomitant]
     Active Substance: ESOMEPRAZOLE MAGNESIUM
     Indication: GASTROOESOPHAGEAL REFLUX DISEASE
     Route: 048
     Dates: start: 201503

REACTIONS (4)
  - Erythema [Recovered/Resolved]
  - Dizziness [Recovered/Resolved]
  - Headache [Recovered/Resolved]
  - Malaise [Recovered/Resolved]

NARRATIVE: CASE EVENT DATE: 20150607
